FAERS Safety Report 8042556-6 (Version None)
Quarter: 2012Q1

REPORT INFORMATION
  Report Type: 
  Country: None (occurrence: None)
  Receive Date: 20120112
  Receipt Date: 20120109
  Transmission Date: 20120608
  Serious: Yes (Death)
  Sender: FDA-Public Use
  Company Number: US-PFIZER INC-2011305730

PATIENT
  Sex: Female

DRUGS (5)
  1. POTASSIUM CHLORIDE [Concomitant]
     Indication: OEDEMA
     Dosage: UNK
  2. FUROSEMIDE [Concomitant]
     Indication: OEDEMA
     Dosage: UNK
  3. REVATIO [Suspect]
     Indication: PULMONARY HYPERTENSION
     Dosage: 20 MG, 3X/DAY
     Dates: start: 20101207, end: 20110101
  4. TRACLEER [Concomitant]
     Indication: PULMONARY HYPERTENSION
     Dosage: UNK
  5. REVATIO [Suspect]
     Dosage: UNK
     Route: 048

REACTIONS (1)
  - DEATH [None]
